FAERS Safety Report 14896616 (Version 3)
Quarter: 2018Q3

REPORT INFORMATION
  Report Type: Spontaneous
  Country: US (occurrence: US)
  Receive Date: 20180515
  Receipt Date: 20180924
  Transmission Date: 20181010
  Serious: Yes (Death, Life-Threatening, Other)
  Sender: FDA-Public Use
  Company Number: US-009507513-1805USA005441

PATIENT
  Age: 53 Year
  Sex: Female
  Weight: 82 kg

DRUGS (9)
  1. REMERON [Suspect]
     Active Substance: MIRTAZAPINE
     Dosage: UNK
     Route: 048
  2. QUETIAPINE FUMARATE. [Suspect]
     Active Substance: QUETIAPINE FUMARATE
  3. MORPHINE [Suspect]
     Active Substance: MORPHINE
  4. CITALOPRAM [Suspect]
     Active Substance: CITALOPRAM HYDROBROMIDE
  5. DIAZEPAM. [Suspect]
     Active Substance: DIAZEPAM
  6. TEMAZEPAM. [Suspect]
     Active Substance: TEMAZEPAM
  7. NORDAZEPAM [Suspect]
     Active Substance: NORDAZEPAM
  8. AMITRIPTYLINE HYDROCHLORIDE. [Suspect]
     Active Substance: AMITRIPTYLINE HYDROCHLORIDE
  9. NORTRIPTYLINE [Suspect]
     Active Substance: NORTRIPTYLINE

REACTIONS (2)
  - Accidental overdose [Fatal]
  - Toxicity to various agents [Fatal]
